FAERS Safety Report 19019033 (Version 1)
Quarter: 2021Q1

REPORT INFORMATION
  Report Type: Spontaneous
  Country: US (occurrence: US)
  Receive Date: 20210317
  Receipt Date: 20210317
  Transmission Date: 20210420
  Serious: Yes (Hospitalization)
  Sender: FDA-Public Use
  Company Number: US-PFIZER INC-2021171801

PATIENT
  Age: 65 Year
  Sex: Female
  Weight: 56.7 kg

DRUGS (1)
  1. IBRANCE [Suspect]
     Active Substance: PALBOCICLIB
     Indication: METASTATIC NEOPLASM
     Dosage: 125 MG, CYCLIC (21DAYS ON, 7 DAYS OFF)
     Route: 048
     Dates: start: 20210104

REACTIONS (3)
  - Thrombosis [Unknown]
  - White blood cell count decreased [Unknown]
  - Blood potassium decreased [Unknown]
